FAERS Safety Report 4802033-X (Version None)
Quarter: 2005Q4

REPORT INFORMATION
  Report Type: 
  Country: None (occurrence: None)
  Receive Date: 20051012
  Receipt Date: 20051003
  Transmission Date: 20060501
  Serious: Yes (Other)
  Sender: FDA-Public Use
  Company Number: 2005137170

PATIENT
  Sex: Male

DRUGS (1)
  1. LYRICA [Suspect]
     Indication: PAIN
     Dates: start: 20050901, end: 20050901

REACTIONS (3)
  - MOUTH HAEMORRHAGE [None]
  - OFF LABEL USE [None]
  - RECTAL HAEMORRHAGE [None]
